FAERS Safety Report 8802597 (Version 3)
Quarter: 2012Q4

REPORT INFORMATION
  Report Type: 
  Country: US (occurrence: US)
  Receive Date: 20120921
  Receipt Date: 20121030
  Transmission Date: 20130627
  Serious: No
  Sender: FDA-Public Use
  Company Number: US-TEVA-359999USA

PATIENT
  Age: 49 None
  Sex: Female

DRUGS (1)
  1. PROAIR HFA [Suspect]
     Indication: ASTHMA
     Route: 055
     Dates: start: 201202

REACTIONS (5)
  - Lung disorder [Unknown]
  - Incorrect dose administered [Unknown]
  - Bronchial secretion retention [Unknown]
  - Cough [Unknown]
  - Mental disorder [Unknown]
